FAERS Safety Report 8128048-4 (Version None)
Quarter: 2012Q1

REPORT INFORMATION
  Report Type: 
  Country: None (occurrence: None)
  Receive Date: 20120210
  Receipt Date: 20120130
  Transmission Date: 20120608
  Serious: Yes (Other)
  Sender: FDA-Public Use
  Company Number: US-JNJFOC-20120203696

PATIENT
  Sex: Female

DRUGS (12)
  1. INVEGA [Interacting]
     Indication: DRUG THERAPY
  2. RIBAVIRIN [Concomitant]
     Indication: HEPATITIS C
     Route: 048
     Dates: end: 20120125
  3. PHENERGAN [Concomitant]
  4. INCIVEK [Suspect]
     Indication: HEPATITIS C
     Route: 048
     Dates: end: 20120125
  5. SYNTHROID [Concomitant]
  6. ADDERALL 5 [Concomitant]
  7. MULTI-VITAMINS [Concomitant]
  8. PAXIL [Concomitant]
  9. PROTONIX [Concomitant]
  10. SUBOXONE [Concomitant]
  11. PEGASYS [Suspect]
     Indication: HEPATITIS C
     Route: 048
     Dates: end: 20120125
  12. LISINOPRIL [Concomitant]

REACTIONS (4)
  - SOMNOLENCE [None]
  - RENAL FAILURE [None]
  - DEHYDRATION [None]
  - DRUG INTERACTION [None]
